FAERS Safety Report 4394666-2 (Version None)
Quarter: 2004Q3

REPORT INFORMATION
  Report Type: 
  Country: None (occurrence: None)
  Receive Date: 20040712
  Receipt Date: 20040625
  Transmission Date: 20050211
  Serious: Yes (Other)
  Sender: FDA-Public Use
  Company Number: US-MERCK-0406USA02559

PATIENT
  Age: 83 Year
  Sex: Female

DRUGS (4)
  1. SYNTHROID [Concomitant]
     Route: 065
  2. COZAAR [Suspect]
     Indication: HYPERTENSION
     Route: 048
     Dates: start: 20020101
  3. STARLIX [Concomitant]
     Indication: DIABETES MELLITUS
     Route: 065
  4. VIOXX [Concomitant]
     Route: 048
     Dates: start: 20000101

REACTIONS (4)
  - BLOOD PRESSURE INCREASED [None]
  - FEELING ABNORMAL [None]
  - HYPERTENSION [None]
  - SCIATIC NERVE NEUROPATHY [None]
